FAERS Safety Report 4745305-X (Version None)
Quarter: 2005Q3

REPORT INFORMATION
  Report Type: 
  Country: None (occurrence: None)
  Receive Date: 20050812
  Receipt Date: 20050729
  Transmission Date: 20060218
  Serious: Yes (Other)
  Sender: FDA-Public Use
  Company Number: 2005112797

PATIENT
  Age: 46 Year
  Sex: Male
  Weight: 71 kg

DRUGS (3)
  1. CABERGOLINE [Suspect]
     Indication: PARKINSON'S DISEASE
     Dosage: 4 MG (4 MG, DAILY), ORAL
     Route: 048
     Dates: end: 20040301
  2. SINEMET [Concomitant]
  3. EFFEXOR [Concomitant]

REACTIONS (5)
  - ABNORMAL BEHAVIOUR [None]
  - OBSESSIVE-COMPULSIVE DISORDER [None]
  - PATHOLOGICAL GAMBLING [None]
  - PSYCHOSEXUAL DISORDER [None]
  - THINKING ABNORMAL [None]
